FAERS Safety Report 6765607-5 (Version None)
Quarter: 2010Q2

REPORT INFORMATION
  Report Type: 
  Country: None (occurrence: None)
  Receive Date: 20100611
  Receipt Date: 20100527
  Transmission Date: 20101027
  Serious: Yes (Hospitalization, Other)
  Sender: FDA-Public Use
  Company Number: ZA-PFIZER INC-2010066544

PATIENT
  Sex: Female

DRUGS (6)
  1. LOMANOR [Suspect]
     Indication: EJECTION FRACTION DECREASED
     Dosage: 5 MG, DAILY
     Route: 048
     Dates: end: 20100525
  2. SERETIDE [Concomitant]
     Route: 065
  3. ZITHROMAX [Concomitant]
     Route: 065
  4. ENOXAPARIN SODIUM [Concomitant]
     Route: 065
  5. IRBESARTAN [Concomitant]
     Route: 048
  6. CREON [Concomitant]
     Route: 048

REACTIONS (5)
  - GALLBLADDER OPERATION [None]
  - HEPATIC ENZYME INCREASED [None]
  - LUNG INFECTION [None]
  - NIGHT SWEATS [None]
  - NIGHTMARE [None]
